FAERS Safety Report 16711761 (Version 1)
Quarter: 2019Q3

REPORT INFORMATION
  Report Type: Spontaneous
  Country: US (occurrence: US)
  Receive Date: 20190816
  Receipt Date: 20190816
  Transmission Date: 20191004
  Serious: No
  Sender: FDA-Public Use
  Company Number: US-SA-2019SA225430

PATIENT
  Age: 14 Year
  Sex: Female

DRUGS (1)
  1. DUPIXENT [Suspect]
     Active Substance: DUPILUMAB
     Indication: DERMATITIS
     Dosage: 200/1.14ML
     Route: 058
     Dates: start: 20190430

REACTIONS (2)
  - Dermatitis atopic [Recovered/Resolved]
  - Product use issue [Unknown]

NARRATIVE: CASE EVENT DATE: 20190430
